FAERS Safety Report 15810495 (Version 1)
Quarter: 2019Q1

REPORT INFORMATION
  Report Type: Spontaneous
  Country: US (occurrence: US)
  Receive Date: 20190111
  Receipt Date: 20190111
  Transmission Date: 20190417
  Serious: No
  Sender: FDA-Public Use
  Company Number: US-ROCHE-2111791

PATIENT
  Age: 39 Year
  Sex: Female

DRUGS (2)
  1. RITUXAN [Suspect]
     Active Substance: RITUXIMAB
     Indication: RHEUMATOID ARTHRITIS
     Dosage: DAY 1 AND 14
     Route: 042
     Dates: start: 20180301
  2. RITUXAN [Suspect]
     Active Substance: RITUXIMAB
     Dosage: DAY 1 AND DAY 14, 150 MG INFUSED
     Route: 042
     Dates: start: 20180315

REACTIONS (3)
  - Nausea [Recovered/Resolved]
  - Hypotension [Recovered/Resolved]
  - Hypersensitivity [Recovered/Resolved]

NARRATIVE: CASE EVENT DATE: 20180315
